FAERS Safety Report 7137844-1 (Version None)
Quarter: 2010Q4

REPORT INFORMATION
  Report Type: 
  Country: None (occurrence: None)
  Receive Date: 20101103
  Receipt Date: 20100331
  Transmission Date: 20110411
  Serious: Yes (Hospitalization)
  Sender: FDA-Public Use
  Company Number: 2010S1000145

PATIENT

DRUGS (2)
  1. CUBICIN [Suspect]
     Indication: MULTIPLE SCLEROSIS
     Dosage: QW
  2. CUBICIN [Suspect]
     Indication: OFF LABEL USE
     Dosage: QW

REACTIONS (1)
  - DEVICE RELATED INFECTION [None]
